FAERS Safety Report 14870573 (Version 1)
Quarter: 2018Q2

REPORT INFORMATION
  Report Type: Spontaneous
  Country: US (occurrence: US)
  Receive Date: 20180509
  Receipt Date: 20180509
  Transmission Date: 20180711
  Serious: Yes (Other)
  Sender: FDA-Public Use
  Company Number: US-AMGEN-USASP2018054023

PATIENT
  Age: 80 Year
  Sex: Female
  Weight: 67.12 kg

DRUGS (11)
  1. REPATHA [Suspect]
     Active Substance: EVOLOCUMAB
     Indication: CORONARY ARTERY DISEASE
     Dosage: UNK UNK, QMO
     Route: 065
  2. MAGNESIUM [Concomitant]
     Active Substance: MAGNESIUM
     Dosage: 400 MG, QD
     Route: 048
  3. FOLVITE [Concomitant]
     Active Substance: FOLIC ACID
     Dosage: 400 MCG, QD
     Route: 048
  4. BIOTIN [Concomitant]
     Active Substance: BIOTIN
     Dosage: 10000 MCG, QD
     Route: 048
  5. ASPIRIN EC [Concomitant]
     Active Substance: ASPIRIN
     Indication: CORONARY ARTERY DISEASE
     Dosage: 81 MG, QD
     Route: 048
  6. THERAGRAN [Concomitant]
     Active Substance: VITAMINS
     Dosage: 1 DF, QD
     Route: 048
  7. LUTEIN [Concomitant]
     Active Substance: LUTEIN
     Dosage: 1 DF, QD
     Route: 048
  8. REPATHA [Suspect]
     Active Substance: EVOLOCUMAB
     Indication: DYSLIPIDAEMIA
     Dosage: 140 MG, Q2WK
     Route: 065
     Dates: start: 2017
  9. REPATHA [Suspect]
     Active Substance: EVOLOCUMAB
     Indication: HYPERLIPIDAEMIA
  10. PROTONIX [Concomitant]
     Active Substance: PANTOPRAZOLE SODIUM
     Dosage: 20 MG, QD
     Route: 048
  11. COENZYME Q10 [Concomitant]
     Active Substance: UBIDECARENONE
     Dosage: 100 MG, QD
     Route: 048

REACTIONS (10)
  - Dysaesthesia [Unknown]
  - Drug effect decreased [Unknown]
  - Chest pain [Recovered/Resolved]
  - Vertigo positional [Unknown]
  - Pulmonary mass [Unknown]
  - Bradycardia [Unknown]
  - Muscle spasms [Unknown]
  - Stress [Unknown]
  - Burning sensation [Recovered/Resolved]
  - Hyperglycaemia [Unknown]

NARRATIVE: CASE EVENT DATE: 2018
